FAERS Safety Report 4444911-X (Version None)
Quarter: 2004Q3

REPORT INFORMATION
  Report Type: 
  Country: None (occurrence: None)
  Receive Date: 20040909
  Receipt Date: 20040907
  Transmission Date: 20050211
  Serious: Yes (Hospitalization)
  Sender: FDA-Public Use
  Company Number: FR-GLAXOSMITHKLINE-B0344660A

PATIENT
  Age: 61 Year
  Sex: Female
  Weight: 60 kg

DRUGS (14)
  1. CLAMOXYL [Suspect]
     Dosage: 3G PER DAY
     Route: 048
     Dates: start: 20040706, end: 20040707
  2. AUGMENTIN '125' [Suspect]
     Dosage: 1G UNKNOWN
     Route: 048
     Dates: start: 20040707
  3. ISOTHIPENDYL [Suspect]
     Dosage: 1TAB PER DAY
     Route: 048
     Dates: start: 20040705, end: 20040705
  4. PIASCLEDINE [Suspect]
     Dosage: 300MG PER DAY
     Route: 048
     Dates: start: 20040515, end: 20040708
  5. ART [Suspect]
     Dosage: 50MG PER DAY
     Route: 048
     Dates: start: 20040515, end: 20040708
  6. BETNEVAL [Concomitant]
     Route: 061
     Dates: start: 20040706, end: 20040706
  7. XYZAL [Concomitant]
     Dosage: 5MG PER DAY
     Route: 048
     Dates: start: 20040706, end: 20040707
  8. KERLONE [Concomitant]
     Dosage: 20MG PER DAY
     Route: 048
     Dates: start: 20030501
  9. STILNOX [Concomitant]
     Dosage: .5TAB PER DAY
     Route: 048
     Dates: start: 20040515
  10. CUIVRE GRANION [Concomitant]
     Dosage: 2G PER DAY
     Route: 048
     Dates: start: 20040515, end: 20040708
  11. OGAST [Concomitant]
     Route: 065
  12. ISOTHIPENDYL [Concomitant]
     Dates: start: 20040703, end: 20040705
  13. LEVOTHYROXINE SODIUM [Concomitant]
     Dosage: 100MG PER DAY
     Route: 048
  14. FLECAINE [Concomitant]
     Dosage: 150MG PER DAY
     Route: 048
     Dates: start: 20030501

REACTIONS (9)
  - ALANINE AMINOTRANSFERASE INCREASED [None]
  - ASPARTATE AMINOTRANSFERASE INCREASED [None]
  - BLISTER [None]
  - BLOOD ALKALINE PHOSPHATASE INCREASED [None]
  - EOSINOPHILIA [None]
  - GAMMA-GLUTAMYLTRANSFERASE INCREASED [None]
  - PYREXIA [None]
  - RASH PUSTULAR [None]
  - VASCULAR PURPURA [None]
